FAERS Safety Report 18169227 (Version 1)
Quarter: 2020Q3

REPORT INFORMATION
  Report Type: Spontaneous
  Country: US (occurrence: US)
  Receive Date: 20200819
  Receipt Date: 20200819
  Transmission Date: 20201103
  Serious: No
  Sender: FDA-Public Use
  Company Number: None

PATIENT
  Age: 53 Year
  Sex: Female
  Weight: 45 kg

DRUGS (4)
  1. ONE A DAY PETITE VITAMINS [Concomitant]
  2. ALBUTEROL SULFATE INHALATION AEROSOL 90 MCG ACTUATION 200 METERED [Suspect]
     Active Substance: ALBUTEROL SULFATE
     Indication: ASTHMA
     Dosage: ?          QUANTITY:2 PUFF(S);?
     Route: 055
     Dates: start: 20200816, end: 20200817
  3. BABY ASPIRIN 81MG [Concomitant]
  4. ALBUTEROL SULFATE INHALATION AEROSOL 90 MCG ACTUATION 200 METERED [Suspect]
     Active Substance: ALBUTEROL SULFATE
     Indication: CHRONIC OBSTRUCTIVE PULMONARY DISEASE
     Dosage: ?          QUANTITY:2 PUFF(S);?
     Route: 055
     Dates: start: 20200816, end: 20200817

REACTIONS (6)
  - Device delivery system issue [None]
  - Device physical property issue [None]
  - Product packaging difficult to open [None]
  - Product taste abnormal [None]
  - Drug ineffective [None]
  - Burn oral cavity [None]

NARRATIVE: CASE EVENT DATE: 20200816
